FAERS Safety Report 8084832-7 (Version None)
Quarter: 2012Q1

REPORT INFORMATION
  Report Type: 
  Country: None (occurrence: None)
  Receive Date: 20120128
  Receipt Date: 20110322
  Transmission Date: 20120608
  Serious: No
  Sender: FDA-Public Use
  Company Number: US-ABBOTT-11P-163-0713679-00

PATIENT
  Sex: Male
  Weight: 95.34 kg

DRUGS (2)
  1. HUMIRA [Suspect]
     Indication: PSORIATIC ARTHROPATHY
     Route: 058
     Dates: start: 20100401
  2. HUMIRA [Suspect]
     Indication: PSORIASIS

REACTIONS (6)
  - ARTHROPATHY [None]
  - DRUG EFFECT DECREASED [None]
  - ARTHRALGIA [None]
  - PRODUCT QUALITY ISSUE [None]
  - GAIT DISTURBANCE [None]
  - MUSCULOSKELETAL PAIN [None]
